FAERS Safety Report 13460287 (Version 2)
Quarter: 2017Q3

REPORT INFORMATION
  Report Type: Spontaneous
  Country: US (occurrence: US)
  Receive Date: 20170420
  Receipt Date: 20170912
  Transmission Date: 20171127
  Serious: No
  Sender: FDA-Public Use
  Company Number: US-ASTRAZENECA-2017SE38375

PATIENT
  Sex: Male
  Weight: 65.8 kg

DRUGS (2)
  1. CRESTOR [Suspect]
     Active Substance: ROSUVASTATIN CALCIUM
     Dosage: GENERIC
     Route: 048
     Dates: start: 201703
  2. CRESTOR [Suspect]
     Active Substance: ROSUVASTATIN CALCIUM
     Route: 048
     Dates: start: 2014, end: 201701

REACTIONS (4)
  - Pain [Unknown]
  - Myalgia [Unknown]
  - Weight decreased [Unknown]
  - Hypoacusis [Unknown]
